FAERS Safety Report 5391068-7 (Version None)
Quarter: 2007Q3

REPORT INFORMATION
  Report Type: 
  Country: None (occurrence: None)
  Receive Date: 20070719
  Receipt Date: 20070712
  Transmission Date: 20080115
  Serious: Yes (Hospitalization, Other)
  Sender: FDA-Public Use
  Company Number: FR-ELI_LILLY_AND_COMPANY-FR200707003854

PATIENT
  Age: 53 Year
  Sex: Female

DRUGS (2)
  1. FORTEO [Suspect]
     Indication: OSTEOPOROSIS
     Dosage: 20 UG, DAILY (1/D)
     Route: 058
     Dates: start: 20061025
  2. CORTISONE ACETATE [Concomitant]
     Indication: ASTHMA
     Dosage: 40 MG, DAILY (1/D)

REACTIONS (2)
  - LUMBAR VERTEBRAL FRACTURE [None]
  - PAIN [None]
